FAERS Safety Report 5306805-7 (Version None)
Quarter: 2007Q2

REPORT INFORMATION
  Report Type: 
  Country: None (occurrence: None)
  Receive Date: 20070423
  Receipt Date: 20070423
  Transmission Date: 20071010
  Serious: Yes (Hospitalization)
  Sender: FDA-Public Use
  Company Number: None

PATIENT
  Age: 41 Year
  Sex: Male
  Weight: 91.6266 kg

DRUGS (8)
  1. CHANTIX [Suspect]
     Indication: SMOKING CESSATION THERAPY
     Dosage: 1MG TWICE/DAY
     Dates: start: 20070203, end: 20070212
  2. KLONIPIN [Concomitant]
  3. NEURONTIN [Concomitant]
  4. TRAZODONE HCL [Concomitant]
  5. SEROQUEL [Concomitant]
  6. AMBIEN [Concomitant]
  7. ADVAIR DISKUS 100/50 [Concomitant]
  8. PROVENTIL-HFA [Concomitant]

REACTIONS (1)
  - RHABDOMYOLYSIS [None]
